FAERS Safety Report 11741263 (Version 3)
Quarter: 2015Q4

REPORT INFORMATION
  Report Type: Spontaneous
  Country: RO (occurrence: RO)
  Receive Date: 20151116
  Receipt Date: 20151210
  Transmission Date: 20160304
  Serious: Yes (Hospitalization)
  Sender: FDA-Public Use
  Company Number: RO-PFIZER INC-2015377473

PATIENT
  Age: 51 Year
  Sex: Female
  Weight: 90 kg

DRUGS (2)
  1. TORISEL [Suspect]
     Active Substance: TEMSIROLIMUS
     Indication: RENAL CANCER METASTATIC
     Dosage: 25 MG, WEEKLY
     Route: 042
     Dates: start: 201502, end: 201508
  2. TORISEL [Suspect]
     Active Substance: TEMSIROLIMUS
     Dosage: UNK (1 BOTTLE/ WEEK)
     Route: 042
     Dates: start: 201509, end: 201510

REACTIONS (3)
  - Diabetic hyperglycaemic coma [Recovered/Resolved with Sequelae]
  - Hyperglycaemia [Unknown]
  - Hyperglycaemia [Recovered/Resolved with Sequelae]

NARRATIVE: CASE EVENT DATE: 201507
